FAERS Safety Report 12341929 (Version 3)
Quarter: 2016Q3

REPORT INFORMATION
  Report Type: Report from Study
  Country: CO (occurrence: CO)
  Receive Date: 20160506
  Receipt Date: 20160714
  Transmission Date: 20161109
  Serious: Yes (Other)
  Sender: FDA-Public Use
  Company Number: PHHY2016CO062707

PATIENT
  Age: 73 Year
  Sex: Male
  Weight: 50 kg

DRUGS (6)
  1. AMLODIPINE [Concomitant]
     Active Substance: AMLODIPINE BESYLATE
     Indication: BLOOD PRESSURE ABNORMAL
     Dosage: 0.5 MG, Q12H
     Route: 048
  2. TASIGNA [Suspect]
     Active Substance: NILOTINIB
     Indication: CHRONIC MYELOID LEUKAEMIA
     Dosage: 2 DF, Q12H
     Route: 048
     Dates: start: 20140729
  3. ACETYLSALICYLIC ACID [Concomitant]
     Active Substance: ASPIRIN
     Indication: BLOOD PRESSURE ABNORMAL
     Dosage: 100 MG, QD (EVERY EVENING)
     Route: 048
  4. LOVASTATIN. [Concomitant]
     Active Substance: LOVASTATIN
     Indication: PRODUCT USED FOR UNKNOWN INDICATION
     Dosage: 50 MG, QD (EVERY EVENING)
     Route: 048
  5. METFORMIN [Concomitant]
     Active Substance: METFORMIN HYDROCHLORIDE
     Indication: DIABETES MELLITUS
     Dosage: 850 MG, Q12H
     Route: 048
  6. ENALAPRIL [Concomitant]
     Active Substance: ENALAPRIL
     Indication: BLOOD PRESSURE ABNORMAL
     Dosage: 20 MG, Q12H
     Route: 048

REACTIONS (5)
  - Movement disorder [Unknown]
  - Malaise [Unknown]
  - Speech disorder [Unknown]
  - Terminal state [Unknown]
  - Anaemia [Unknown]

NARRATIVE: CASE EVENT DATE: 201603
